FAERS Safety Report 22218564 (Version 2)
Quarter: 2023Q2

REPORT INFORMATION
  Report Type: Spontaneous
  Country: DE (occurrence: DE)
  Receive Date: 20230417
  Receipt Date: 20230623
  Transmission Date: 20230722
  Serious: Yes (Hospitalization, Other)
  Sender: FDA-Public Use
  Company Number: None

PATIENT
  Sex: Female
  Weight: 163 kg

DRUGS (4)
  1. LETROZOLE [Suspect]
     Active Substance: LETROZOLE
     Indication: Breast cancer metastatic
     Dosage: 1 DOSAGE FORM,QD,(FOR 3 WEEKS WITH 1 WEEK BREAK)
     Route: 065
     Dates: start: 20230109
  2. ZOLEDRONIC ACID [Suspect]
     Active Substance: ZOLEDRONIC ACID
     Indication: Breast cancer metastatic
     Dosage: UNK, MONTHLY, UNK UNK, QMO (FROM APR 2023)
     Route: 065
     Dates: start: 202304
  3. KISQALI [Suspect]
     Active Substance: RIBOCICLIB
     Indication: Breast cancer metastatic
     Dosage: 3 DOSAGE FORM,QD(FOR 3 WEEKS WITH 1 WEEK BREAK)
     Route: 065
     Dates: start: 20230130
  4. KISQALI [Suspect]
     Active Substance: RIBOCICLIB
     Dosage: 2 DOSAGE FORM, QD
     Route: 065
     Dates: start: 2023

REACTIONS (9)
  - Metastases to bone [Unknown]
  - Cerebral infarction [Recovering/Resolving]
  - Cerebrovascular accident [Recovering/Resolving]
  - Cerebral artery embolism [Recovering/Resolving]
  - Pericardial effusion [Recovering/Resolving]
  - Anaemia [Unknown]
  - Pleural effusion [Recovering/Resolving]
  - Nausea [Unknown]
  - Decreased appetite [Unknown]

NARRATIVE: CASE EVENT DATE: 20230216
